FAERS Safety Report 12161238 (Version 3)
Quarter: 2016Q4

REPORT INFORMATION
  Report Type: Report from Study
  Country: JP (occurrence: JP)
  Receive Date: 20160308
  Receipt Date: 20161222
  Transmission Date: 20170207
  Serious: No
  Sender: FDA-Public Use
  Company Number: JP-FRI-1000082945

PATIENT
  Age: 42 Year
  Sex: Male
  Weight: 92.7 kg

DRUGS (21)
  1. CARIPRAZINE (OPEN-LABEL) [Suspect]
     Active Substance: CARIPRAZINE
     Indication: SCHIZOPHRENIA
     Dosage: 3 MG, NOT PRN
     Route: 048
     Dates: start: 20150501, end: 20150528
  2. MYDRIN-P [Concomitant]
     Active Substance: PHENYLEPHRINE HYDROCHLORIDE\TROPICAMIDE
     Dosage: ADEQUATE DOSE
     Dates: start: 20150901, end: 20150901
  3. MYDRIN-P [Concomitant]
     Active Substance: PHENYLEPHRINE HYDROCHLORIDE\TROPICAMIDE
     Dosage: ADEQUATE DOSE
     Dates: start: 20160209, end: 20160209
  4. MYDRIN-P [Concomitant]
     Active Substance: PHENYLEPHRINE HYDROCHLORIDE\TROPICAMIDE
     Dosage: ADEQUATE DOSE
     Dates: start: 20160314, end: 20160314
  5. CARIPRAZINE HCL 1.5MG CAP (TBD) [Suspect]
     Active Substance: CARIPRAZINE
     Indication: SCHIZOPHRENIA
     Dosage: 9 MG, NOT PRN
     Route: 048
     Dates: start: 20150206, end: 20150318
  6. CARIPRAZINE (OPEN-LABEL) [Suspect]
     Active Substance: CARIPRAZINE
     Dosage: 9 MG, NOT PRN
     Route: 048
     Dates: start: 20151002, end: 20160216
  7. MYDRIN-P [Concomitant]
     Active Substance: PHENYLEPHRINE HYDROCHLORIDE\TROPICAMIDE
     Indication: PRODUCT USED FOR UNKNOWN INDICATION
     Dosage: ADEQUATE DOSE
     Dates: start: 20150210, end: 20150210
  8. MYDRIN-P [Concomitant]
     Active Substance: PHENYLEPHRINE HYDROCHLORIDE\TROPICAMIDE
     Dosage: ADEQUATE DOSE
     Dates: start: 20160601, end: 20160601
  9. ARIPIPRAZOLE. [Concomitant]
     Active Substance: ARIPIPRAZOLE
     Dosage: 400 MG, UNK
     Dates: start: 20160412, end: 20160509
  10. BEZAFIBRATE [Concomitant]
     Active Substance: BEZAFIBRATE
     Indication: PRODUCT USED FOR UNKNOWN INDICATION
     Dosage: 400 MG, UNK
     Dates: start: 20150223
  11. MYDRIN-P [Concomitant]
     Active Substance: PHENYLEPHRINE HYDROCHLORIDE\TROPICAMIDE
     Dosage: ADEQUATE DOSE
     Dates: start: 20151201, end: 20151201
  12. CETIRIZINE [Concomitant]
     Active Substance: CETIRIZINE HYDROCHLORIDE
     Indication: PRODUCT USED FOR UNKNOWN INDICATION
     Dosage: 10 MG, UNK
     Dates: start: 20160317, end: 20160323
  13. MYDRIN-P [Concomitant]
     Active Substance: PHENYLEPHRINE HYDROCHLORIDE\TROPICAMIDE
     Dosage: ADEQUATE DOSE
     Dates: start: 20150331, end: 20150331
  14. MYDRIN-P [Concomitant]
     Active Substance: PHENYLEPHRINE HYDROCHLORIDE\TROPICAMIDE
     Dosage: ADEQUATE DOSE
     Dates: start: 20150623, end: 20150623
  15. MYDRIN-P [Concomitant]
     Active Substance: PHENYLEPHRINE HYDROCHLORIDE\TROPICAMIDE
     Dosage: ADEQUATE DOSE
     Dates: start: 20160510, end: 20160510
  16. ARIPIPRAZOLE. [Concomitant]
     Active Substance: ARIPIPRAZOLE
     Indication: PRODUCT USED FOR UNKNOWN INDICATION
     Dosage: 12 MG, UNK
     Dates: start: 20160217, end: 20160301
  17. MYDRIN-P [Concomitant]
     Active Substance: PHENYLEPHRINE HYDROCHLORIDE\TROPICAMIDE
     Dosage: ADEQUATE DOSE
     Dates: start: 20150512, end: 20150512
  18. ARIPIPRAZOLE. [Concomitant]
     Active Substance: ARIPIPRAZOLE
     Dosage: 18 MG, UNK
     Dates: start: 20160302, end: 20160411
  19. CARIPRAZINE HCL 1.5MG CAP (TBD) [Suspect]
     Active Substance: CARIPRAZINE
     Dosage: 9 MG, NOT PRN
     Route: 048
     Dates: start: 20150319, end: 20150430
  20. CARIPRAZINE (OPEN-LABEL) [Suspect]
     Active Substance: CARIPRAZINE
     Dosage: 6 MG, NOT PRN
     Route: 048
     Dates: start: 20150529, end: 20151001
  21. MYDRIN-P [Concomitant]
     Active Substance: PHENYLEPHRINE HYDROCHLORIDE\TROPICAMIDE
     Dosage: ADEQUATE DOSE
     Dates: start: 20160419, end: 20160419

REACTIONS (1)
  - Detachment of retinal pigment epithelium [Not Recovered/Not Resolved]

NARRATIVE: CASE EVENT DATE: 20160209
